FAERS Safety Report 6421069-9 (Version None)
Quarter: 2009Q4

REPORT INFORMATION
  Report Type: 
  Country: None (occurrence: None)
  Receive Date: 20091030
  Receipt Date: 20091020
  Transmission Date: 20100525
  Serious: Yes (Hospitalization)
  Sender: FDA-Public Use
  Company Number: US-JNJFOC-20091006533

PATIENT
  Sex: Female
  Weight: 74.84 kg

DRUGS (9)
  1. REMICADE [Suspect]
     Route: 042
     Dates: start: 20030101, end: 20091006
  2. REMICADE [Suspect]
     Indication: CROHN'S DISEASE
     Route: 042
     Dates: start: 20030101, end: 20091006
  3. BENADRYL [Concomitant]
     Indication: PREMEDICATION
  4. VITAMINS NOS [Concomitant]
  5. IMODIUM [Concomitant]
  6. PENTASA [Concomitant]
  7. VICODIN [Concomitant]
     Indication: HEADACHE
  8. EXCEDRIN (MIGRAINE) [Concomitant]
     Indication: HEADACHE
  9. ASPIRIN [Concomitant]
     Indication: HEADACHE

REACTIONS (5)
  - HEADACHE [None]
  - HEART RATE IRREGULAR [None]
  - INTESTINAL RESECTION [None]
  - LOSS OF CONSCIOUSNESS [None]
  - PARAESTHESIA [None]
